FAERS Safety Report 9390766 (Version 1)
Quarter: 2013Q3

REPORT INFORMATION
  Report Type: Spontaneous
  Country: US (occurrence: US)
  Receive Date: 20130709
  Receipt Date: 20130709
  Transmission Date: 20140515
  Serious: No
  Sender: FDA-Public Use
  Company Number: US-BIOGENIDEC-2013BI060745

PATIENT
  Age: 33 Year
  Sex: Male

DRUGS (1)
  1. AVONEX [Suspect]
     Indication: MULTIPLE SCLEROSIS
     Route: 030
     Dates: start: 20130317

REACTIONS (4)
  - Injection site bruising [Not Recovered/Not Resolved]
  - Injection site mass [Recovered/Resolved]
  - Fear of injection [Recovered/Resolved]
  - Injection site haemorrhage [Recovered/Resolved]
